FAERS Safety Report 5279813-2 (Version None)
Quarter: 2007Q1

REPORT INFORMATION
  Report Type: 
  Country: None (occurrence: None)
  Receive Date: 20061212
  Receipt Date: 20041214
  Transmission Date: 20070707
  Serious: Yes (Other)
  Sender: FDA-Public Use
  Company Number: 2004UW25413

PATIENT
  Sex: Male

DRUGS (3)
  1. RHINOCORT AQUA [Suspect]
     Indication: HYPERSENSITIVITY
     Dosage: 256 UG IN
     Route: 055
     Dates: start: 20041214
  2. DILANTIN [Concomitant]
  3. ALKALOL [Concomitant]

REACTIONS (2)
  - HEADACHE [None]
  - MEDICATION ERROR [None]
